FAERS Safety Report 7108584-X (Version None)
Quarter: 2010Q4

REPORT INFORMATION
  Report Type: 
  Country: None (occurrence: None)
  Receive Date: 20101117
  Receipt Date: 20101110
  Transmission Date: 20110411
  Serious: Yes (Other)
  Sender: FDA-Public Use
  Company Number: US-ROCHE-730071

PATIENT
  Sex: Female

DRUGS (6)
  1. PEGASYS [Suspect]
     Indication: HEPATITIS C
     Route: 065
     Dates: start: 20091030, end: 20100919
  2. PEGASYS [Suspect]
     Route: 065
  3. COPEGUS [Suspect]
     Indication: HEPATITIS C
     Route: 065
  4. COPEGUS [Suspect]
     Route: 065
  5. COPEGUS [Suspect]
     Dosage: DOSE: 1000
     Route: 065
     Dates: start: 20091030, end: 20100919
  6. PROCRIT [Suspect]
     Dosage: DOSE: 40000
     Route: 065
     Dates: start: 20100222

REACTIONS (9)
  - ANAEMIA [None]
  - ARTHRALGIA [None]
  - HAEMOGLOBIN DECREASED [None]
  - HYPOTHYROIDISM [None]
  - LEUKOPENIA [None]
  - MEAN CELL VOLUME INCREASED [None]
  - PRURITUS [None]
  - WEIGHT DECREASED [None]
  - WHITE BLOOD CELL COUNT DECREASED [None]
